FAERS Safety Report 25077764 (Version 1)
Quarter: 2025Q1

REPORT INFORMATION
  Report Type: Spontaneous
  Country: PL (occurrence: PL)
  Receive Date: 20250314
  Receipt Date: 20250314
  Transmission Date: 20250409
  Serious: Yes (Hospitalization, Other)
  Sender: SANDOZ
  Company Number: PL-SANDOZ-SDZ2025PL015668

PATIENT
  Age: 40 Year
  Sex: Female

DRUGS (2)
  1. RIBOCICLIB [Suspect]
     Active Substance: RIBOCICLIB
     Indication: HER2 negative breast cancer
     Route: 065
     Dates: start: 202008, end: 20210313
  2. ZOLEDRONIC ACID [Suspect]
     Active Substance: ZOLEDRONIC ACID
     Indication: HER2 negative breast cancer
     Route: 065
     Dates: start: 202008

REACTIONS (4)
  - Wolff-Parkinson-White syndrome [Recovered/Resolved]
  - Neutropenia [Unknown]
  - Febrile neutropenia [Unknown]
  - Genital infection female [Unknown]

NARRATIVE: CASE EVENT DATE: 20200801
